FAERS Safety Report 6155879-2 (Version None)
Quarter: 2009Q2

REPORT INFORMATION
  Report Type: 
  Country: None (occurrence: None)
  Receive Date: 20090410
  Receipt Date: 20090410
  Transmission Date: 20091009
  Serious: Yes (Life-Threatening, Hospitalization)
  Sender: FDA-Public Use
  Company Number: None

PATIENT
  Age: 76 Year
  Sex: Female
  Weight: 92 kg

DRUGS (1)
  1. CUBICIN [Suspect]
     Indication: STAPHYLOCOCCAL INFECTION
     Dosage: 400MG Q 24 HOURS IV
     Route: 042
     Dates: start: 20081112, end: 20081220

REACTIONS (4)
  - DYSPNOEA [None]
  - EOSINOPHILIA [None]
  - LUNG INFILTRATION [None]
  - PYREXIA [None]
